FAERS Safety Report 17536912 (Version 1)
Quarter: 2020Q1

REPORT INFORMATION
  Report Type: Spontaneous
  Country: PL (occurrence: PL)
  Receive Date: 20200313
  Receipt Date: 20200313
  Transmission Date: 20200409
  Serious: Yes (Life-Threatening)
  Sender: FDA-Public Use
  Company Number: NVSC2020PL069115

PATIENT
  Age: 61 Year
  Sex: Male
  Weight: 186 kg

DRUGS (7)
  1. FLUOROURACIL. [Concomitant]
     Active Substance: FLUOROURACIL
     Dosage: 1398 MG, UNKNOWN
     Route: 042
     Dates: start: 20191129, end: 20191130
  2. CLEMASTINE [Concomitant]
     Active Substance: CLEMASTINE
     Indication: COLON CANCER
     Dosage: 2 MG, UNKNOWN
     Route: 042
     Dates: start: 20191129, end: 20191129
  3. ONDANSETRON [Concomitant]
     Active Substance: ONDANSETRON
     Indication: COLON CANCER
     Dosage: 8 MG, UNKNOWN
     Route: 042
     Dates: start: 20191129, end: 20191129
  4. DEXAMETHASONE. [Concomitant]
     Active Substance: DEXAMETHASONE
     Indication: COLON CANCER
     Dosage: 8 MG, UNKNOWN
     Route: 042
     Dates: start: 20191129, end: 20191129
  5. FLUOROURACIL. [Concomitant]
     Active Substance: FLUOROURACIL
     Indication: COLON CANCER
     Dosage: 932 MG, UNKNOWN
     Route: 042
     Dates: start: 20191129, end: 20191129
  6. OXALIPLATIN. [Suspect]
     Active Substance: OXALIPLATIN
     Indication: COLON CANCER
     Dosage: 150 MG, UNKNOWN
     Route: 042
     Dates: start: 20191129, end: 20191129
  7. LEVOFOLINATE DE CALCIUM [Concomitant]
     Active Substance: LEVOLEUCOVORIN CALCIUM
     Indication: COLON CANCER
     Dosage: 233 MG, UNKNOWN
     Route: 042
     Dates: start: 20191129, end: 20191130

REACTIONS (4)
  - Abdominal pain [Unknown]
  - Malaise [Unknown]
  - Nausea [Unknown]
  - Asthenia [Unknown]
